FAERS Safety Report 16589508 (Version 1)
Quarter: 2019Q3

REPORT INFORMATION
  Report Type: Spontaneous
  Country: FR (occurrence: FR)
  Receive Date: 20190718
  Receipt Date: 20190718
  Transmission Date: 20191004
  Serious: Yes (Hospitalization)
  Sender: FDA-Public Use
  Company Number: FR-TEVA-2019-FR-1078072

PATIENT
  Age: 72 Year
  Sex: Female
  Weight: 84 kg

DRUGS (13)
  1. KARDEGIC [Concomitant]
     Active Substance: ASPIRIN DL-LYSINE
     Dosage: 1 DOSAGE FORM PER DAY
     Route: 048
     Dates: end: 20190301
  2. TELMISARTAN. [Concomitant]
     Active Substance: TELMISARTAN
     Dosage: 80 MG PER DAY
     Route: 048
     Dates: end: 20190301
  3. UVEDOSE 100 000 UI, SOLUTION BUVABLE EN AMPOULE [Concomitant]
     Active Substance: CHOLECALCIFEROL
     Indication: VITAMIN SUPPLEMENTATION
     Dosage: 1 DOSAGE FORM PER 3 MONTHS
     Route: 048
     Dates: end: 20190301
  4. TRUXIMA [Suspect]
     Active Substance: RITUXIMAB-ABBS
     Indication: NODAL MARGINAL ZONE B-CELL LYMPHOMA STAGE IV
     Dosage: 700 MG FOR 22 DAYS
     Route: 042
     Dates: start: 20190122, end: 20190213
  5. ENDOXAN 1000 MG, LYOPHILISAT POUR SOLUTION INJECTABLE [Concomitant]
     Active Substance: CYCLOPHOSPHAMIDE
     Indication: NODAL MARGINAL ZONE B-CELL LYMPHOMA STAGE IV
     Dosage: 1420 MG PER CYCLICAL
     Route: 041
     Dates: start: 20190122, end: 20190122
  6. RULID [Suspect]
     Active Substance: ROXITHROMYCIN
     Indication: FEBRILE NEUTROPENIA
     Dosage: UNKNOWN, FOR 6 DAYS
     Route: 048
     Dates: start: 20190213, end: 20190219
  7. BACTRIM [Suspect]
     Active Substance: SULFAMETHOXAZOLE\TRIMETHOPRIM
     Indication: PROPHYLAXIS
     Dosage: 3 DOSAGE FORM PER WEEK FOR 40 DAYS
     Route: 048
     Dates: start: 20190123, end: 20190304
  8. ELDISINE 5 MG, POUDRE POUR SOLUTION INJECTABLE [Concomitant]
     Indication: NODAL MARGINAL ZONE B-CELL LYMPHOMA STAGE IV
     Dosage: 5.7 MG PER CYCLICAL
     Route: 041
     Dates: start: 20190122, end: 20190122
  9. AMOXICILLINE [Suspect]
     Active Substance: AMOXICILLIN
     Indication: PYREXIA
     Dosage: UNKNOWN
     Route: 048
     Dates: start: 20190203
  10. SOLUPRED [Concomitant]
     Indication: NODAL MARGINAL ZONE B-CELL LYMPHOMA STAGE IV
     Dosage: 45MGX2 FROM J1 TO J5, 450 MG
     Route: 048
     Dates: start: 20190122, end: 20190122
  11. ALLOPURINOL. [Suspect]
     Active Substance: ALLOPURINOL
     Indication: PROPHYLAXIS
     Dosage: 300 MG PER DAY FOR 11 DAYS
     Route: 048
     Dates: start: 20190123, end: 20190203
  12. LEDERFOLINE 25 MG, COMPRIME [Suspect]
     Active Substance: LEUCOVORIN CALCIUM
     Indication: PROPHYLAXIS
     Dosage: 1 DOSAGE FORM
     Route: 048
  13. CLARITHROMYCINE [Suspect]
     Active Substance: CLARITHROMYCIN
     Indication: PYREXIA
     Dosage: UNKNOWN
     Route: 048
     Dates: start: 20190203

REACTIONS (3)
  - Oedema peripheral [Recovered/Resolved]
  - Rash maculo-papular [Recovered/Resolved]
  - Eosinophilia [Recovered/Resolved]

NARRATIVE: CASE EVENT DATE: 20190217
